FAERS Safety Report 9343822 (Version 3)
Quarter: 2013Q3

REPORT INFORMATION
  Report Type: Spontaneous
  Country: US (occurrence: US)
  Receive Date: 20130612
  Receipt Date: 20130822
  Transmission Date: 20140515
  Serious: Yes (Hospitalization, Other)
  Sender: FDA-Public Use
  Company Number: US-009507513-1306USA004683

PATIENT
  Age: 59 Year
  Sex: Male
  Weight: 63.39 kg

DRUGS (9)
  1. VICTRELIS [Suspect]
     Indication: HEPATITIS C
     Dosage: 200 MG, 4 CAPSULES, TID
     Route: 048
     Dates: start: 20121001, end: 201306
  2. REBETOL [Suspect]
     Indication: HEPATITIS C
     Dosage: UNK
     Route: 048
     Dates: start: 20120903
  3. PEGASYS [Suspect]
     Indication: HEPATITIS C
     Dosage: UNK
     Dates: start: 20120903
  4. GLYBURIDE [Concomitant]
  5. LORAZEPAM [Concomitant]
  6. LISINOPRIL [Concomitant]
  7. PROCRIT [Concomitant]
  8. PROMACTA [Concomitant]
  9. PREVACID [Concomitant]

REACTIONS (4)
  - Grand mal convulsion [Recovered/Resolved]
  - Presyncope [Recovered/Resolved]
  - Syncope [Recovered/Resolved]
  - Communication disorder [Unknown]
